FAERS Safety Report 7759182-6 (Version None)
Quarter: 2011Q3

REPORT INFORMATION
  Report Type: 
  Country: None (occurrence: None)
  Receive Date: 20110919
  Receipt Date: 20110916
  Transmission Date: 20111222
  Serious: Yes (Death)
  Sender: FDA-Public Use
  Company Number: PHHY2011US44948

PATIENT
  Sex: Female
  Weight: 93.9 kg

DRUGS (6)
  1. EXJADE [Suspect]
     Indication: IRON OVERLOAD
     Dosage: 1750 MG, QD
     Route: 048
     Dates: start: 20110316, end: 20110324
  2. TACROLIMUS [Concomitant]
     Dosage: 3 MG, DAILY
     Route: 042
  3. ACYCLOVIR [Concomitant]
     Dosage: 500 MG, Q12H
     Route: 042
  4. FLOVENT [Concomitant]
     Dosage: UNK UKN, UNK
  5. FLAGYL [Concomitant]
     Dosage: 50 MG, Q8H
     Route: 042
  6. NEUPOGEN [Concomitant]
     Dosage: 400 MG, DAILY
     Route: 042

REACTIONS (2)
  - INFECTION [None]
  - HYPOPHAGIA [None]
